FAERS Safety Report 15292462 (Version 5)
Quarter: 2018Q4

REPORT INFORMATION
  Report Type: Spontaneous
  Country: US (occurrence: US)
  Receive Date: 20180818
  Receipt Date: 20181225
  Transmission Date: 20190204
  Serious: Yes (Other)
  Sender: FDA-Public Use
  Company Number: US-JNJFOC-20180729470

PATIENT
  Age: 77 Year
  Sex: Female
  Weight: 95.26 kg

DRUGS (28)
  1. ADVAIR HFA [Concomitant]
     Active Substance: FLUTICASONE PROPIONATE\SALMETEROL XINAFOATE
     Dosage: 250/50 MCG/DOSE, INHALE 1 PUFF INTO THE LUNGS
     Route: 055
  2. PRAVACHOL [Concomitant]
     Active Substance: PRAVASTATIN SODIUM
     Route: 048
  3. XARELTO [Suspect]
     Active Substance: RIVAROXABAN
     Indication: ATRIAL FIBRILLATION
     Dosage: WITH DINNER
     Route: 048
     Dates: start: 2018, end: 201807
  4. ENTRESTO [Concomitant]
     Active Substance: SACUBITRIL\VALSARTAN
     Indication: CHRONIC LEFT VENTRICULAR FAILURE
     Dosage: 49-51 MG
     Route: 048
  5. ALBUTEROL. [Concomitant]
     Active Substance: ALBUTEROL
     Dosage: INHALE 1 PUFF INTO THE LUNGS EVERY SIX HOURS AS NEEDED
     Route: 055
  6. XARELTO [Suspect]
     Active Substance: RIVAROXABAN
     Indication: CEREBROVASCULAR ACCIDENT PROPHYLAXIS
     Route: 048
     Dates: start: 201803, end: 2018
  7. XARELTO [Suspect]
     Active Substance: RIVAROXABAN
     Indication: ATRIAL FIBRILLATION
     Route: 048
     Dates: start: 201803, end: 2018
  8. ALBUTEROL W/IPRATROPIUM [Concomitant]
     Active Substance: ALBUTEROL\IPRATROPIUM
     Dosage: 18-103 MCG/ACTUATION: INHALE 1 PUFF INTO THE LUNGS EVERY 6 HOURS AS NEEDED.
     Route: 055
  9. PROTONIX [Concomitant]
     Active Substance: PANTOPRAZOLE SODIUM
     Route: 048
  10. ATROVENT [Concomitant]
     Active Substance: IPRATROPIUM BROMIDE
     Dosage: NEBULIZATION
     Route: 065
  11. LISTERINE TOTAL CARE [Suspect]
     Active Substance: SODIUM FLUORIDE
     Indication: ORAL PAIN
     Route: 048
     Dates: start: 201807, end: 201807
  12. LANOXIN [Concomitant]
     Active Substance: DIGOXIN
     Indication: CHRONIC KIDNEY DISEASE
     Route: 048
  13. ALDACTONE [Concomitant]
     Active Substance: SPIRONOLACTONE
     Indication: CHRONIC LEFT VENTRICULAR FAILURE
     Route: 048
  14. ALDACTONE [Concomitant]
     Active Substance: SPIRONOLACTONE
     Indication: CHRONIC KIDNEY DISEASE
     Route: 048
  15. CRANBERRY. [Concomitant]
     Active Substance: CRANBERRY
     Route: 048
  16. XARELTO [Suspect]
     Active Substance: RIVAROXABAN
     Indication: CEREBROVASCULAR ACCIDENT PROPHYLAXIS
     Dosage: WITH DINNER
     Route: 048
     Dates: start: 2018, end: 201807
  17. ORAJEL [Suspect]
     Active Substance: ALLANTOIN\BENZOCAINE\CAMPHOR (NATURAL)\DIMETHICONE\MENTHOL
     Indication: ORAL PAIN
     Route: 048
     Dates: start: 201807, end: 201807
  18. ENTRESTO [Concomitant]
     Active Substance: SACUBITRIL\VALSARTAN
     Indication: CHRONIC KIDNEY DISEASE
     Dosage: 49-51 MG
     Route: 048
  19. LANOXIN [Concomitant]
     Active Substance: DIGOXIN
     Indication: CHRONIC LEFT VENTRICULAR FAILURE
     Route: 048
  20. COMBIVENT [Concomitant]
     Active Substance: ALBUTEROL SULFATE\IPRATROPIUM BROMIDE
     Dosage: INHALE 1 PUFF INTO THE LUNGS EVERY SIX HOURS AS NEEDED
     Route: 055
  21. TYLENOL [Concomitant]
     Active Substance: ACETAMINOPHEN
     Dosage: AS NEEDED
     Route: 048
  22. XARELTO [Suspect]
     Active Substance: RIVAROXABAN
     Indication: CEREBROVASCULAR ACCIDENT PROPHYLAXIS
     Route: 048
     Dates: start: 20180717
  23. VITAMIN B12 [Concomitant]
     Active Substance: CYANOCOBALAMIN
     Dosage: 1000 MCG/ 15 ML
     Route: 065
  24. ATARAX [Concomitant]
     Active Substance: HYDROXYZINE HYDROCHLORIDE
     Route: 048
  25. XARELTO [Suspect]
     Active Substance: RIVAROXABAN
     Indication: ATRIAL FIBRILLATION
     Route: 048
     Dates: start: 20180717
  26. BUMEX [Concomitant]
     Active Substance: BUMETANIDE
     Route: 048
  27. COLACE [Concomitant]
     Active Substance: DOCUSATE SODIUM
     Indication: CONSTIPATION
     Dosage: 100 MG BY MOUTH AS NEEDED
     Route: 048
  28. VITAMIN D3 [Concomitant]
     Active Substance: CHOLECALCIFEROL
     Route: 048

REACTIONS (4)
  - Toothache [Recovered/Resolved]
  - Epistaxis [Recovered/Resolved]
  - Visual impairment [Not Recovered/Not Resolved]
  - Gingival bleeding [Unknown]

NARRATIVE: CASE EVENT DATE: 2018
